FAERS Safety Report 5627340-2 (Version None)
Quarter: 2008Q1

REPORT INFORMATION
  Report Type: 
  Country: None (occurrence: None)
  Receive Date: 20080128
  Receipt Date: 20071226
  Transmission Date: 20080703
  Serious: Yes (Other)
  Sender: FDA-Public Use
  Company Number: 013364

PATIENT
  Sex: Female

DRUGS (1)
  1. PRIALT [Suspect]
     Indication: MULTIPLE SCLEROSIS
     Dosage: 0.1 UG, ONCE/HOUR, INTRATHECAL
     Route: 037
     Dates: start: 20070701

REACTIONS (2)
  - DEPRESSION [None]
  - SUICIDAL IDEATION [None]
